FAERS Safety Report 16837844 (Version 3)
Quarter: 2023Q2

REPORT INFORMATION
  Report Type: Spontaneous
  Country: US (occurrence: US)
  Receive Date: 20190923
  Receipt Date: 20230530
  Transmission Date: 20230722
  Serious: Yes (Other)
  Sender: FDA-Public Use
  Company Number: US-GILEAD-2019-0429262

PATIENT
  Age: 38 Year
  Sex: Male
  Weight: 99.773 kg

DRUGS (47)
  1. VIREAD [Suspect]
     Active Substance: TENOFOVIR DISOPROXIL FUMARATE
     Indication: HIV infection
     Dosage: UNK
     Route: 048
     Dates: start: 2001, end: 2018
  2. VIREAD [Suspect]
     Active Substance: TENOFOVIR DISOPROXIL FUMARATE
     Dosage: UNK
     Route: 065
     Dates: start: 20170831, end: 20171007
  3. VIREAD [Suspect]
     Active Substance: TENOFOVIR DISOPROXIL FUMARATE
     Dosage: UNK
     Route: 065
     Dates: start: 20170821, end: 20170919
  4. VIREAD [Suspect]
     Active Substance: TENOFOVIR DISOPROXIL FUMARATE
     Dosage: UNK
     Route: 065
     Dates: start: 20171130, end: 20171230
  5. VIREAD [Suspect]
     Active Substance: TENOFOVIR DISOPROXIL FUMARATE
     Dosage: UNK
     Route: 065
     Dates: start: 2003, end: 2017
  6. VIREAD [Suspect]
     Active Substance: TENOFOVIR DISOPROXIL FUMARATE
     Dosage: UNK
     Route: 048
     Dates: start: 200507, end: 201712
  7. GENVOYA [Concomitant]
     Active Substance: COBICISTAT\ELVITEGRAVIR\EMTRICITABINE\TENOFOVIR ALAFENAMIDE FUMARATE
  8. CARDURA [Concomitant]
     Active Substance: DOXAZOSIN MESYLATE
     Dosage: UNK
     Dates: start: 20100118
  9. NEPHROCAPS [Concomitant]
     Active Substance: ASCORBIC ACID\BIOTIN\CYANOCOBALAMIN\FOLIC ACID\NIACIN\PANTOTHENIC ACID\PYRIDOXINE\RIBOFLAVIN\THIAMIN
     Dosage: UNK
     Dates: start: 20090908, end: 20170221
  10. SODIUM BICARBONATE [Concomitant]
     Active Substance: SODIUM BICARBONATE
     Dosage: UNK
     Dates: start: 20111128, end: 20140821
  11. FERROUS SULFATE [Concomitant]
     Active Substance: FERROUS SULFATE
     Dosage: UNK
     Dates: start: 20150918, end: 20170118
  12. CALCIUM [Concomitant]
     Active Substance: CALCIUM
  13. VELPHORO [Concomitant]
     Active Substance: SUCROFERRIC OXYHYDROXIDE
  14. INSULIN GLARGINE [Concomitant]
     Active Substance: INSULIN GLARGINE
  15. INSULIN BEEF [Concomitant]
     Active Substance: INSULIN BEEF
  16. LEVEMIR [Concomitant]
     Active Substance: INSULIN DETEMIR
  17. FUROSEMIDE [Concomitant]
     Active Substance: FUROSEMIDE
  18. AMLODIPINE [Concomitant]
     Active Substance: AMLODIPINE BESYLATE
  19. CLONIDINE [Concomitant]
     Active Substance: CLONIDINE
  20. TERAZOSIN [Concomitant]
     Active Substance: TERAZOSIN HYDROCHLORIDE
  21. LABETALOL [Concomitant]
     Active Substance: LABETALOL\LABETALOL HYDROCHLORIDE
  22. LISINOPRIL [Concomitant]
     Active Substance: LISINOPRIL
  23. LOSARTAN [Concomitant]
     Active Substance: LOSARTAN
  24. METOPROLOL TARTRATE [Concomitant]
     Active Substance: METOPROLOL TARTRATE
  25. VALSARTAN [Concomitant]
     Active Substance: VALSARTAN
  26. AURYXIA [Concomitant]
     Active Substance: TETRAFERRIC TRICITRATE DECAHYDRATE
  27. PHOSLO [Concomitant]
     Active Substance: CALCIUM ACETATE
  28. CALCIUM CARBONATE [Concomitant]
     Active Substance: CALCIUM CARBONATE
  29. SEVELAMER [Concomitant]
     Active Substance: SEVELAMER
  30. EPOGEN [Concomitant]
     Active Substance: ERYTHROPOIETIN
  31. EPIVIR [Concomitant]
     Active Substance: LAMIVUDINE
  32. NORVIR [Concomitant]
     Active Substance: RITONAVIR
  33. REYATAZ [Concomitant]
     Active Substance: ATAZANAVIR SULFATE
  34. ACETAMINOPHEN [Concomitant]
     Active Substance: ACETAMINOPHEN
  35. BENZONATATE [Concomitant]
     Active Substance: BENZONATATE
  36. OXYCODONE AND ACETAMINOPHEN [Concomitant]
     Active Substance: ACETAMINOPHEN\OXYCODONE HYDROCHLORIDE
  37. VITAMIN D NOS [Concomitant]
     Active Substance: VITAMIN D NOS
  38. VITAMIN E [Concomitant]
     Active Substance: .ALPHA.-TOCOPHEROL
  39. LACTULOSE [Concomitant]
     Active Substance: LACTULOSE
  40. NITROGLYCERIN [Concomitant]
     Active Substance: NITROGLYCERIN
  41. ZEMPLAR [Concomitant]
     Active Substance: PARICALCITOL
  42. TYLOX [Concomitant]
     Active Substance: ACETAMINOPHEN\OXYCODONE HYDROCHLORIDE
  43. VIDEX EC [Concomitant]
     Active Substance: DIDANOSINE
  44. VIRACEPT [Concomitant]
     Active Substance: NELFINAVIR MESYLATE
  45. HYTRIN [Concomitant]
     Active Substance: TERAZOSIN HYDROCHLORIDE
  46. HECTOROL [Concomitant]
     Active Substance: DOXERCALCIFEROL
  47. PRO-STATIN [Concomitant]

REACTIONS (15)
  - End stage renal disease [Not Recovered/Not Resolved]
  - Loss of personal independence in daily activities [Not Recovered/Not Resolved]
  - Decreased activity [Not Recovered/Not Resolved]
  - Quality of life decreased [Not Recovered/Not Resolved]
  - Fatigue [Not Recovered/Not Resolved]
  - Mobility decreased [Not Recovered/Not Resolved]
  - Loss of employment [Not Recovered/Not Resolved]
  - Economic problem [Not Recovered/Not Resolved]
  - Social problem [Not Recovered/Not Resolved]
  - Pain [Not Recovered/Not Resolved]
  - Emotional distress [Not Recovered/Not Resolved]
  - Anxiety [Not Recovered/Not Resolved]
  - Anhedonia [Not Recovered/Not Resolved]
  - Chronic kidney disease [Not Recovered/Not Resolved]
  - Chronic kidney disease-mineral and bone disorder [Not Recovered/Not Resolved]

NARRATIVE: CASE EVENT DATE: 20080901
